FAERS Safety Report 7780199-X (Version None)
Quarter: 2011Q3

REPORT INFORMATION
  Report Type: 
  Country: None (occurrence: None)
  Receive Date: 20110927
  Receipt Date: 20110927
  Transmission Date: 20111222
  Serious: Yes (Hospitalization)
  Sender: FDA-Public Use
  Company Number: None

PATIENT
  Age: 67 Year
  Sex: Male
  Weight: 73.028 kg

DRUGS (9)
  1. DIPHENOXYLATE-ATROPINE -LOMOTIL [Concomitant]
  2. PAZOPANIB [Suspect]
     Indication: RENAL CANCER
     Dosage: 800MG
     Route: 048
     Dates: start: 20110620, end: 20110920
  3. TAMSULOSIN HCL [Concomitant]
  4. BENZONATATE [Concomitant]
  5. OMEPRAZOLE [Concomitant]
  6. PROCHLORPERAZINE MALEATE [Concomitant]
  7. TYLENOL-500 [Concomitant]
  8. AMLODIPINE BESYLATE [Suspect]
  9. MULTI-VITAMIN [Concomitant]

REACTIONS (5)
  - MASS [None]
  - HAEMOPTYSIS [None]
  - LYMPHADENOPATHY [None]
  - BRONCHIAL DISORDER [None]
  - LUNG NEOPLASM [None]
